FAERS Safety Report 8256503-5 (Version None)
Quarter: 2012Q2

REPORT INFORMATION
  Report Type: 
  Country: None (occurrence: None)
  Receive Date: 20120403
  Receipt Date: 20120328
  Transmission Date: 20120825
  Serious: Yes (Death)
  Sender: FDA-Public Use
  Company Number: US-PFIZER INC-2012079684

PATIENT
  Sex: Female

DRUGS (1)
  1. CAMPTOSAR [Suspect]
     Indication: PANCREATIC CARCINOMA
     Dosage: 160 MG, 2X/WEEK (EVERY 2 WEEKS)

REACTIONS (2)
  - PANCREATIC CARCINOMA METASTATIC [None]
  - DISEASE PROGRESSION [None]
